FAERS Safety Report 9768235 (Version 2)
Quarter: 2014Q1

REPORT INFORMATION
  Report Type: Spontaneous
  Country: FR (occurrence: FR)
  Receive Date: 20131217
  Receipt Date: 20140106
  Transmission Date: 20141002
  Serious: Yes (Hospitalization)
  Sender: FDA-Public Use
  Company Number: FR-BRISTOL-MYERS SQUIBB COMPANY-19920644

PATIENT
  Age: 85 Year
  Sex: Female
  Weight: 68 kg

DRUGS (10)
  1. GLUCOPHAGE TABS 1000 MG [Suspect]
     Route: 048
     Dates: end: 20131106
  2. AMAREL [Suspect]
     Dosage: 1 DF : 4MG TABLET
     Route: 048
     Dates: end: 20131104
  3. HYPERIUM [Suspect]
     Dosage: 1 DF : 1MG?TABLET
     Route: 048
     Dates: end: 20131106
  4. ZESTRIL [Concomitant]
     Dosage: TABLET
     Route: 048
     Dates: start: 20131105
  5. PREVISCAN [Concomitant]
     Indication: PHLEBITIS
     Route: 048
  6. MOPRAL [Concomitant]
     Dosage: GASTRO RESISTANT TABLET
     Route: 048
  7. PRAVASTATIN SODIUM [Concomitant]
     Route: 048
  8. XYZALL [Concomitant]
     Route: 048
     Dates: start: 20131104, end: 20131104
  9. COAPROVEL [Concomitant]
     Dosage: TABLET
     Route: 048
     Dates: end: 20131105
  10. PIASCLEDINE [Concomitant]
     Dosage: 1 DF : 300MG?CAPSULE
     Route: 048
     Dates: end: 20131104

REACTIONS (3)
  - Hypoglycaemia [Recovered/Resolved]
  - Anaemia macrocytic [Unknown]
  - Renal impairment [Unknown]
